FAERS Safety Report 23532910 (Version 2)
Quarter: 2024Q1

REPORT INFORMATION
  Report Type: Spontaneous
  Country: GB (occurrence: GB)
  Receive Date: 20240216
  Receipt Date: 20240222
  Transmission Date: 20240409
  Serious: Yes (Other)
  Sender: FDA-Public Use
  Company Number: GB-002147023-NVSC2024GB033148

PATIENT
  Sex: Female

DRUGS (1)
  1. TEGRETOL [Suspect]
     Active Substance: CARBAMAZEPINE
     Indication: Product used for unknown indication
     Dosage: 200 MG (3 IN MORNING 3 AT NIGHT)
     Route: 065

REACTIONS (2)
  - Epilepsy [Unknown]
  - Product availability issue [Unknown]
